FAERS Safety Report 10559545 (Version 8)
Quarter: 2017Q4

REPORT INFORMATION
  Report Type: Report from Study
  Country: CA (occurrence: CA)
  Receive Date: 20141103
  Receipt Date: 20171114
  Transmission Date: 20180320
  Serious: Yes (Death, Hospitalization, Other)
  Sender: FDA-Public Use
  Company Number: PHHY2014CA108712

PATIENT
  Age: 71 Year
  Sex: Female

DRUGS (4)
  1. SANDOSTATIN LAR DEPOT [Suspect]
     Active Substance: OCTREOTIDE ACETATE
     Indication: CARCINOID TUMOUR
     Dosage: 60 MG, QMO (EVERY FOUR WEEK)
     Route: 030
     Dates: start: 20120305
  2. SANDOSTATIN LAR DEPOT [Suspect]
     Active Substance: OCTREOTIDE ACETATE
     Dosage: 30 MG, QMO (EVERY 4 WEEKS)
     Route: 030
     Dates: start: 20120320
  3. SANDOSTATIN [Suspect]
     Active Substance: OCTREOTIDE ACETATE
     Indication: NEUROENDOCRINE TUMOUR
     Dosage: UNK
     Route: 058
     Dates: start: 20120305, end: 201203
  4. SANDOSTATIN LAR DEPOT [Suspect]
     Active Substance: OCTREOTIDE ACETATE
     Dosage: 60 MG, QMO (EVERY 4 WEEKS)
     Route: 030
     Dates: start: 20130507

REACTIONS (14)
  - Blood urine present [Recovering/Resolving]
  - General physical health deterioration [Unknown]
  - Pneumonia [Recovering/Resolving]
  - Gout [Recovered/Resolved]
  - Inappropriate schedule of drug administration [Unknown]
  - Blood pressure diastolic decreased [Unknown]
  - Lethargy [Unknown]
  - Hypokinesia [Unknown]
  - Weight decreased [Unknown]
  - Death [Fatal]
  - Heart rate increased [Unknown]
  - Ocular neoplasm [Unknown]
  - Malignant neoplasm progression [Unknown]
  - Heart rate decreased [Unknown]

NARRATIVE: CASE EVENT DATE: 2014
